FAERS Safety Report 5641533-X (Version None)
Quarter: 2008Q1

REPORT INFORMATION
  Report Type: 
  Country: None (occurrence: None)
  Receive Date: 20080227
  Receipt Date: 20071019
  Transmission Date: 20080703
  Serious: No
  Sender: FDA-Public Use
  Company Number: A0688642A

PATIENT
  Age: 70 Year
  Sex: Male

DRUGS (4)
  1. NICORETTE [Suspect]
     Indication: DRUG USE FOR UNKNOWN INDICATION
  2. NICORETTE [Suspect]
     Indication: DRUG USE FOR UNKNOWN INDICATION
  3. NICORETTE [Suspect]
     Indication: DRUG USE FOR UNKNOWN INDICATION
  4. CHANTIX [Concomitant]

REACTIONS (1)
  - INTENTIONAL DRUG MISUSE [None]
